FAERS Safety Report 4666818-5 (Version None)
Quarter: 2005Q2

REPORT INFORMATION
  Report Type: 
  Country: None (occurrence: None)
  Receive Date: 20050518
  Receipt Date: 20050214
  Transmission Date: 20051028
  Serious: Yes (Other)
  Sender: FDA-Public Use
  Company Number: 2005019536

PATIENT
  Age: 20 Year
  Sex: Female
  Weight: 99.7913 kg

DRUGS (2)
  1. DEPO-PROVERA [Suspect]
     Indication: ILL-DEFINED DISORDER
     Dosage: 150MG ( 150MG 1ST INJ) IM; 150 MG ( 150 MG MOST RECENT INJ ) IM
     Route: 030
     Dates: start: 20001215, end: 20001215
  2. DEPO-PROVERA [Suspect]
     Indication: ILL-DEFINED DISORDER
     Dosage: 150MG ( 150MG 1ST INJ) IM; 150 MG ( 150 MG MOST RECENT INJ ) IM
     Route: 030
     Dates: start: 20050124, end: 20050124

REACTIONS (1)
  - WEIGHT INCREASED [None]
